FAERS Safety Report 4879210-5 (Version None)
Quarter: 2005Q4

REPORT INFORMATION
  Report Type: 
  Country: None (occurrence: None)
  Receive Date: 20051209
  Receipt Date: 20050930
  Transmission Date: 20060501
  Serious: Yes (Death, Other)
  Sender: FDA-Public Use
  Company Number: USA-2005-0021366

PATIENT
  Age: 37 Year
  Sex: Male
  Weight: 98.4306 kg

DRUGS (4)
  1. OXYCONTIN [Suspect]
     Dosage: 80 MG, TID, UNKNOWN
     Route: 065
  2. XANAX [Suspect]
     Dosage: 1 MG, BID, UNKNOWN
     Route: 065
  3. DILANTIN [Suspect]
     Dosage: 500 MG, DAILY, UNKNOWN
     Route: 065
  4. TYLOX [Suspect]
     Dosage: 0 UNK, BID, UNKNOWN
     Route: 065

REACTIONS (3)
  - COMA [None]
  - MULTIPLE DRUG OVERDOSE ACCIDENTAL [None]
  - VOMITING [None]
